FAERS Safety Report 19400054 (Version 1)
Quarter: 2021Q2

REPORT INFORMATION
  Report Type: Spontaneous
  Country: US (occurrence: US)
  Receive Date: 20210610
  Receipt Date: 20210610
  Transmission Date: 20210717
  Serious: No
  Sender: FDA-Public Use
  Company Number: US-PFIZER INC-2019033091

PATIENT
  Age: 72 Year
  Sex: Male
  Weight: 89.81 kg

DRUGS (4)
  1. LYRICA [Suspect]
     Active Substance: PREGABALIN
     Indication: PAIN
     Dosage: UNK, 2X/DAY
  2. LYRICA [Suspect]
     Active Substance: PREGABALIN
     Indication: LUMBOSACRAL RADICULOPLEXUS NEUROPATHY
     Dosage: 225 MG, DAILY [2 CAPSULES IN THE MORNING AND 1 CAPSULE IN THE EVENING ]
     Route: 048
     Dates: start: 201807
  3. GLIPIZIDE. [Concomitant]
     Active Substance: GLIPIZIDE
     Indication: DIABETES MELLITUS
     Dosage: 7.5 MG, UNK [5MG ONE IN THE MORNING AND A HALF A TABLET AT NIGHT ]
     Route: 048
  4. LYRICA [Suspect]
     Active Substance: PREGABALIN
     Indication: NEURALGIA
     Dosage: UNK UNK, 3X/DAY

REACTIONS (1)
  - Drug ineffective [Unknown]
